FAERS Safety Report 5371101-9 (Version None)
Quarter: 2007Q2

REPORT INFORMATION
  Report Type: 
  Country: None (occurrence: None)
  Receive Date: 20070615
  Receipt Date: 20070418
  Transmission Date: 20071010
  Serious: Yes (Other)
  Sender: FDA-Public Use
  Company Number: 200712326US

PATIENT
  Age: 50 Year
  Sex: Female

DRUGS (6)
  1. LANTUS [Suspect]
     Indication: DIABETES MELLITUS INSULIN-DEPENDENT
     Dosage: 17 U QD INJ
     Dates: start: 20060801
  2. OPTICLIK [Suspect]
     Indication: DIABETES MELLITUS INSULIN-DEPENDENT
     Dates: start: 20060801
  3. OPTICLIK [Suspect]
  4. SYNTHROID [Concomitant]
  5. VASOTEC [Concomitant]
  6. INSULIN DETEMIR (LEVEMIR) [Concomitant]

REACTIONS (1)
  - HYPERGLYCAEMIA [None]
